FAERS Safety Report 18903130 (Version 1)
Quarter: 2021Q1

REPORT INFORMATION
  Report Type: Spontaneous
  Country: US (occurrence: US)
  Receive Date: 20210216
  Receipt Date: 20210216
  Transmission Date: 20210420
  Serious: No
  Sender: FDA-Public Use
  Company Number: None

PATIENT
  Age: 58 Year
  Sex: Female
  Weight: 65.25 kg

DRUGS (1)
  1. ARMOUR THYROID [Suspect]
     Active Substance: THYROID, PORCINE
     Indication: HYPOTHYROIDISM
     Dosage: ?          QUANTITY:1 TABLET(S);?
     Route: 048

REACTIONS (10)
  - Malaise [None]
  - Neuralgia [None]
  - Nausea [None]
  - Therapeutic product effect decreased [None]
  - Asthenia [None]
  - Autoimmune disorder [None]
  - Product substitution issue [None]
  - Cognitive disorder [None]
  - Joint swelling [None]
  - Impaired quality of life [None]
